FAERS Safety Report 13550120 (Version 1)
Quarter: 2017Q2

REPORT INFORMATION
  Report Type: Spontaneous
  Country: ES (occurrence: ES)
  Receive Date: 20170516
  Receipt Date: 20170516
  Transmission Date: 20170830
  Serious: Yes (Life-Threatening)
  Sender: FDA-Public Use
  Company Number: ES-BAYER-2017-091919

PATIENT
  Age: 69 Year
  Sex: Female

DRUGS (2)
  1. ADIRO 100 MG [Suspect]
     Active Substance: ASPIRIN
     Indication: ARTERIAL STENT INSERTION
     Dosage: 100 MG, QD
     Route: 048
     Dates: start: 20161208, end: 20161223
  2. PLAVIX [Interacting]
     Active Substance: CLOPIDOGREL BISULFATE
     Indication: ARTERIAL STENT INSERTION
     Dosage: 75 MG, QD
     Route: 048
     Dates: start: 20161208, end: 20161223

REACTIONS (2)
  - Subdural haemorrhage [Recovered/Resolved with Sequelae]
  - Subarachnoid haemorrhage [Recovered/Resolved with Sequelae]

NARRATIVE: CASE EVENT DATE: 20161223
